FAERS Safety Report 8354977 (Version 3)
Quarter: 2015Q1

REPORT INFORMATION
  Report Type: Spontaneous
  Country: US (occurrence: US)
  Receive Date: 20120125
  Receipt Date: 20150227
  Transmission Date: 20150721
  Serious: Yes (Death, Hospitalization)
  Sender: FDA-Public Use
  Company Number: US-B.I. PHARMACEUTICALS,INC./RIDGEFIELD-2012-BP-01264BP

PATIENT
  Age: 52 Year
  Sex: Male

DRUGS (6)
  1. METOLAZONE. [Concomitant]
     Active Substance: METOLAZONE
     Indication: CARDIAC FAILURE CONGESTIVE
     Route: 065
  2. MAGNESIUM [Concomitant]
     Active Substance: MAGNESIUM
     Indication: SUPPLEMENTATION THERAPY
     Route: 065
  3. PRADAXA [Suspect]
     Active Substance: DABIGATRAN ETEXILATE MESYLATE
     Dosage: 300 MG
     Route: 048
     Dates: end: 201201
  4. POTASSIUM [Concomitant]
     Active Substance: POTASSIUM
     Indication: SUPPLEMENTATION THERAPY
     Route: 065
  5. ALDACTONE [Concomitant]
     Active Substance: SPIRONOLACTONE
     Indication: CARDIAC FAILURE CONGESTIVE
     Route: 065
  6. PRADAXA [Suspect]
     Active Substance: DABIGATRAN ETEXILATE MESYLATE
     Indication: ATRIAL FIBRILLATION
     Dosage: 300 MG
     Route: 048
     Dates: start: 20111128

REACTIONS (5)
  - Cardiac failure congestive [Fatal]
  - Epistaxis [Not Recovered/Not Resolved]
  - Gastrointestinal haemorrhage [Recovered/Resolved]
  - Renal failure [Unknown]
  - Hepatic failure [Not Recovered/Not Resolved]

NARRATIVE: CASE EVENT DATE: 201201
